FAERS Safety Report 4728009-9 (Version None)
Quarter: 2005Q3

REPORT INFORMATION
  Report Type: 
  Country: None (occurrence: None)
  Receive Date: 20050725
  Receipt Date: 20050404
  Transmission Date: 20060218
  Serious: No
  Sender: FDA-Public Use
  Company Number: USA050494848

PATIENT
  Sex: Female

DRUGS (3)
  1. STRATTERA [Suspect]
     Indication: ATTENTION DEFICIT/HYPERACTIVITY DISORDER
     Dates: start: 20050404
  2. SYNTHROID [Concomitant]
  3. GLUCOPHAGE [Concomitant]

REACTIONS (5)
  - DIZZINESS [None]
  - MALAISE [None]
  - NAUSEA [None]
  - PANIC ATTACK [None]
  - TREMOR [None]
